FAERS Safety Report 25044531 (Version 2)
Quarter: 2025Q1

REPORT INFORMATION
  Report Type: Spontaneous
  Country: JP (occurrence: JP)
  Receive Date: 20250306
  Receipt Date: 20250321
  Transmission Date: 20250408
  Serious: Yes (Death, Life-Threatening, Hospitalization, Other)
  Sender: BAXTER
  Company Number: JP-shionogi-202400003252

PATIENT
  Age: 48 Year
  Sex: Female
  Weight: 38 kg

DRUGS (5)
  1. IFOSFAMIDE [Suspect]
     Active Substance: IFOSFAMIDE
     Indication: Intestinal T-cell lymphoma refractory
     Route: 041
     Dates: start: 20241128, end: 20241129
  2. ETOPOSIDE [Suspect]
     Active Substance: ETOPOSIDE
     Indication: Intestinal T-cell lymphoma refractory
     Route: 065
     Dates: start: 20231128
  3. DEXAMETHASONE SODIUM PHOSPHATE [Suspect]
     Active Substance: DEXAMETHASONE SODIUM PHOSPHATE
     Indication: Intestinal T-cell lymphoma refractory
     Route: 041
     Dates: start: 20241128, end: 20241129
  4. CARBOPLATIN [Suspect]
     Active Substance: CARBOPLATIN
     Indication: Intestinal T-cell lymphoma refractory
     Route: 041
     Dates: start: 20241128, end: 20241129
  5. TUCIDINOSTAT [Suspect]
     Active Substance: TUCIDINOSTAT
     Indication: Product used for unknown indication
     Route: 065
     Dates: end: 20241126

REACTIONS (4)
  - Intestinal ischaemia [Recovering/Resolving]
  - Malignant ascites [Not Recovered/Not Resolved]
  - Abdominal pain [Unknown]
  - Lymphoma [Fatal]

NARRATIVE: CASE EVENT DATE: 20241129
